FAERS Safety Report 7320678-2 (Version None)
Quarter: 2011Q1

REPORT INFORMATION
  Report Type: 
  Country: None (occurrence: None)
  Receive Date: 20110228
  Receipt Date: 20110215
  Transmission Date: 20110831
  Serious: Yes (Other)
  Sender: FDA-Public Use
  Company Number: US-ROCHE-734482

PATIENT
  Sex: Male
  Weight: 59 kg

DRUGS (2)
  1. ACCUTANE [Suspect]
     Indication: ACNE
     Route: 065
     Dates: start: 19980901
  2. ACCUTANE [Suspect]
     Route: 065
     Dates: start: 19990201, end: 19990701

REACTIONS (12)
  - INFLAMMATORY BOWEL DISEASE [None]
  - VISION BLURRED [None]
  - COLITIS ULCERATIVE [None]
  - DEPRESSION [None]
  - PILONIDAL CYST [None]
  - TYMPANIC MEMBRANE PERFORATION [None]
  - INTESTINAL OBSTRUCTION [None]
  - RECTAL HAEMORRHAGE [None]
  - ABDOMINAL PAIN [None]
  - OBSESSIVE-COMPULSIVE DISORDER [None]
  - NAUSEA [None]
  - OTITIS MEDIA [None]
